FAERS Safety Report 25446495 (Version 2)
Quarter: 2025Q2

REPORT INFORMATION
  Report Type: Report from Study
  Country: US (occurrence: US)
  Receive Date: 20250617
  Receipt Date: 20250623
  Transmission Date: 20250717
  Serious: Yes (Hospitalization, Other)
  Sender: TAKEDA
  Company Number: US-TAKEDA-2022TUS062709

PATIENT
  Sex: Male

DRUGS (2)
  1. VEDOLIZUMAB [Suspect]
     Active Substance: VEDOLIZUMAB
     Indication: Crohn^s disease
     Dosage: 300 MILLIGRAM, Q4WEEKS
  2. VEDOLIZUMAB [Suspect]
     Active Substance: VEDOLIZUMAB
     Indication: Colitis ulcerative

REACTIONS (54)
  - Drug dependence [Unknown]
  - Small intestinal perforation [Unknown]
  - Small intestinal obstruction [Unknown]
  - Failure to thrive [Unknown]
  - Staphylococcal infection [Unknown]
  - Vascular device infection [Unknown]
  - Pneumonia aspiration [Unknown]
  - Pain [Unknown]
  - Gastrointestinal stoma complication [Unknown]
  - Electrolyte imbalance [Unknown]
  - Small intestinal stenosis [Unknown]
  - Intestinal stenosis [Unknown]
  - Crohn^s disease [Unknown]
  - Fistula of small intestine [Unknown]
  - Oesophageal candidiasis [Unknown]
  - Abdominal abscess [Unknown]
  - Drug abuse [Unknown]
  - Lactic acidosis [Unknown]
  - Mesenteric vein thrombosis [Unknown]
  - Peritonitis [Unknown]
  - Rectal stenosis [Unknown]
  - Sepsis [Unknown]
  - Vitamin D deficiency [Unknown]
  - Blood glucose increased [Unknown]
  - Gilbert^s syndrome [Unknown]
  - Iron deficiency anaemia [Unknown]
  - White blood cell count decreased [Unknown]
  - Abdominal adhesions [Unknown]
  - Weight decreased [Unknown]
  - Toothache [Unknown]
  - Gut fermentation syndrome [Unknown]
  - Hypophagia [Unknown]
  - Stomal hernia [Unknown]
  - Vitamin K deficiency [Unknown]
  - Anal fistula [Unknown]
  - Diarrhoea infectious [Unknown]
  - Attention deficit hyperactivity disorder [Unknown]
  - Hypovolaemia [Unknown]
  - Pleural effusion [Unknown]
  - Lung opacity [Unknown]
  - Hiatus hernia [Unknown]
  - Chronic gastritis [Unknown]
  - Anxiety [Unknown]
  - Depression [Unknown]
  - Post-traumatic stress disorder [Unknown]
  - Muscle twitching [Unknown]
  - Hydrocele [Unknown]
  - Blood potassium decreased [Unknown]
  - Protein total decreased [Unknown]
  - Back pain [Unknown]
  - Constipation [Unknown]
  - Product dose omission issue [Unknown]
  - Off label use [Unknown]
  - Inappropriate schedule of product administration [Unknown]
